FAERS Safety Report 8896067 (Version 1)
Quarter: 2012Q4

REPORT INFORMATION
  Report Type: Report from Study
  Country: DE (occurrence: DE)
  Receive Date: 20121107
  Receipt Date: 20121107
  Transmission Date: 20130627
  Serious: Yes (Hospitalization)
  Sender: FDA-Public Use
  Company Number: DE-B.I. PHARMACEUTICALS,INC./RIDGEFIELD-2012-DE-02572DE

PATIENT
  Age: 0 Year
  Sex: Female
  Weight: 6 kg

DRUGS (1)
  1. ATROVENT [Suspect]
     Dosage: 1 anz
     Route: 055
     Dates: start: 20121024

REACTIONS (2)
  - Medication error [Recovered/Resolved]
  - Ocular hyperaemia [Recovered/Resolved]
